FAERS Safety Report 6552520-1 (Version None)
Quarter: 2010Q1

REPORT INFORMATION
  Report Type: 
  Country: None (occurrence: None)
  Receive Date: 20100121
  Receipt Date: 20100112
  Transmission Date: 20100710
  Serious: Yes (Hospitalization)
  Sender: FDA-Public Use
  Company Number: 2010SP003008

PATIENT
  Age: 5 Year
  Sex: Male
  Weight: 32.5 kg

DRUGS (2)
  1. PEG-INTRON [Suspect]
     Indication: HEPATITIS C
     Dosage: 80 MCG
     Dates: start: 20100107, end: 20100107
  2. REBETOL [Suspect]
     Indication: HEPATITIS C
     Dates: start: 20100107, end: 20100107

REACTIONS (6)
  - CONVULSION [None]
  - DISSEMINATED INTRAVASCULAR COAGULATION [None]
  - HEPATIC FAILURE [None]
  - LACTIC ACIDOSIS [None]
  - RENAL FAILURE [None]
  - SHOCK [None]
